FAERS Safety Report 7528141-0 (Version None)
Quarter: 2011Q2

REPORT INFORMATION
  Report Type: 
  Country: None (occurrence: None)
  Receive Date: 20110607
  Receipt Date: 20101206
  Transmission Date: 20111010
  Serious: Yes (Hospitalization)
  Sender: FDA-Public Use
  Company Number: US-ASTRAZENECA-2010SE57616

PATIENT
  Age: 74 Year
  Sex: Male
  Weight: 94.3 kg

DRUGS (16)
  1. OMEPRAZOLE [Suspect]
     Indication: BARRETT'S OESOPHAGUS
     Route: 048
     Dates: start: 20090929, end: 20100712
  2. ZOLOFT [Concomitant]
     Dates: start: 20100301
  3. OMEPRAZOLE [Suspect]
     Route: 048
     Dates: start: 20100714
  4. CELECOXIB, IBUPROFEN/NAPROXEN [Suspect]
     Indication: OSTEOARTHRITIS
     Dosage: THREE TIMES DAILY
     Route: 048
     Dates: start: 20090929, end: 20101111
  5. CELECOXIB, IBUPROFEN/NAPROXEN [Suspect]
     Indication: RHEUMATOID ARTHRITIS
     Dosage: THREE TIMES DAILY
     Route: 048
     Dates: start: 20090929, end: 20101111
  6. PRAZOSIN HCL [Concomitant]
     Dates: start: 20091001
  7. AMBIEN [Concomitant]
     Dates: start: 20100301
  8. CELECOXIB, IBUPROFEN/NAPROXEN [Suspect]
     Route: 048
     Dates: start: 20101114
  9. HYDROCHLOROTHIAZIDE [Concomitant]
     Dates: start: 20060101
  10. METOPROLOL SUCCINATE [Concomitant]
     Dates: start: 20091201
  11. PROSCAR [Concomitant]
     Dates: start: 20091001
  12. METFORMIN HCL [Concomitant]
     Dates: start: 20070101
  13. SIMVASTATIN [Concomitant]
     Dates: start: 20060101
  14. AMLODIPINE BESYLATE AND VALSARTAN [Concomitant]
     Dates: start: 20100301
  15. CELECOXIB, IBUPROFEN/NAPROXEN [Suspect]
     Route: 048
     Dates: start: 20101114
  16. LISINOPRIL [Concomitant]
     Dates: start: 20060101

REACTIONS (1)
  - CHEST PAIN [None]
